FAERS Safety Report 9173259 (Version 3)
Quarter: 2013Q4

REPORT INFORMATION
  Report Type: Spontaneous
  Country: FR (occurrence: None)
  Receive Date: 20130314
  Receipt Date: 20131112
  Transmission Date: 20140711
  Serious: Yes (Hospitalization)
  Sender: FDA-Public Use
  Company Number: 20130085

PATIENT
  Age: 60 Year
  Sex: Female

DRUGS (3)
  1. VENOFER [Suspect]
     Indication: IRON DEFICIENCY ANAEMIA
     Route: 042
     Dates: start: 20130110, end: 20130122
  2. CORDARONE (AMIODARONE HYDROCHLORIDE) [Concomitant]
  3. TAZOCILLINE (PIPERACILLIN/TAZOBACTAM) [Concomitant]

REACTIONS (1)
  - Stevens-Johnson syndrome [None]
